FAERS Safety Report 6254442-2 (Version None)
Quarter: 2009Q3

REPORT INFORMATION
  Report Type: 
  Country: None (occurrence: None)
  Receive Date: 20090702
  Receipt Date: 20090617
  Transmission Date: 20100115
  Serious: Yes (Hospitalization)
  Sender: FDA-Public Use
  Company Number: US-BIOGENIDEC-196525

PATIENT
  Age: 59 Year
  Sex: Female
  Weight: 133 kg

DRUGS (12)
  1. AVONEX [Suspect]
     Indication: MULTIPLE SCLEROSIS
     Route: 030
     Dates: start: 20020401, end: 20031201
  2. AVONEX [Suspect]
     Route: 030
     Dates: start: 20031201
  3. ALLOPURINOL [Concomitant]
     Indication: GOUT
  4. AVAPRO [Concomitant]
     Indication: HYPERTENSION
  5. ZEBETA [Concomitant]
     Indication: ARRHYTHMIA
  6. LORTAB [Concomitant]
     Indication: BACK PAIN
  7. ARTHROTEC [Concomitant]
     Indication: ARTHRITIS
     Dates: end: 20040301
  8. LASIX [Concomitant]
     Indication: OEDEMA PERIPHERAL
     Dates: end: 20040301
  9. ZAROXOLYN [Concomitant]
     Indication: OEDEMA PERIPHERAL
     Dates: end: 20040301
  10. CARBIDOPA [Concomitant]
     Indication: RESTLESSNESS
  11. FROVA [Concomitant]
     Indication: MIGRAINE
  12. FIORICET [Concomitant]
     Indication: HEADACHE

REACTIONS (12)
  - ALOPECIA [None]
  - DEPRESSION [None]
  - GASTRIC ULCER HAEMORRHAGE [None]
  - HEADACHE [None]
  - HYPERTENSION [None]
  - INTERVERTEBRAL DISC PROTRUSION [None]
  - MIGRAINE [None]
  - MULTIPLE SCLEROSIS [None]
  - RENAL IMPAIRMENT [None]
  - ROAD TRAFFIC ACCIDENT [None]
  - SPEECH DISORDER [None]
  - TYPE 2 DIABETES MELLITUS [None]
